FAERS Safety Report 15862043 (Version 1)
Quarter: 2018Q4

REPORT INFORMATION
  Report Type: Spontaneous
  Country: US (occurrence: US)
  Receive Date: 20181231
  Receipt Date: 20181231
  Transmission Date: 20190205
  Serious: Yes (Hospitalization, Disabling, Other)
  Sender: FDA-Public Use
  Company Number: None

PATIENT
  Age: 65 Year
  Weight: 176.4 kg

DRUGS (1)
  1. RIVAROXABAN 15 MG [Suspect]
     Active Substance: RIVAROXABAN
     Indication: ATRIAL FIBRILLATION
     Dosage: ?          OTHER FREQUENCY:DAILY SUPPER ;?
     Route: 048
     Dates: start: 20171101

REACTIONS (8)
  - Anaemia [None]
  - Cardiac failure [None]
  - Vitreous floaters [None]
  - Incorrect dose administered [None]
  - Gastrointestinal haemorrhage [None]
  - Ischaemic stroke [None]
  - Dose calculation error [None]
  - Therapy cessation [None]

NARRATIVE: CASE EVENT DATE: 20181124
